FAERS Safety Report 9303994 (Version 1)
Quarter: 2013Q2

REPORT INFORMATION
  Report Type: Spontaneous
  Country: GB (occurrence: GB)
  Receive Date: 20130522
  Receipt Date: 20130522
  Transmission Date: 20140414
  Serious: Yes (Other)
  Sender: FDA-Public Use
  Company Number: PHHY2013GB049001

PATIENT
  Age: 34 Year
  Sex: Female
  Weight: 63.5 kg

DRUGS (3)
  1. CLARITHROMYCIN [Suspect]
     Dates: start: 20130424
  2. AMOXICILLIN [Concomitant]
     Dates: start: 20130410, end: 20130415
  3. AMOXICILLIN [Concomitant]
     Dates: start: 20130425

REACTIONS (2)
  - Erythema [Recovering/Resolving]
  - Vomiting [Recovering/Resolving]
